FAERS Safety Report 10061995 (Version 1)
Quarter: 2014Q2

REPORT INFORMATION
  Report Type: Spontaneous
  Country: US (occurrence: None)
  Receive Date: 20140404
  Receipt Date: 20140404
  Transmission Date: 20141212
  Serious: Yes (Hospitalization)
  Sender: FDA-Public Use
  Company Number: None

PATIENT
  Age: 82 Year
  Sex: Male
  Weight: 89.5 kg

DRUGS (15)
  1. XARELTO [Suspect]
     Indication: PERIPHERAL ARTERY THROMBOSIS
     Route: 048
     Dates: start: 20130708, end: 20140402
  2. ASPIRIN [Concomitant]
  3. ATORVASTATIN [Concomitant]
  4. CHOLECALCIFEROL [Concomitant]
  5. VITAMIN D3 [Concomitant]
  6. COENZYME [Concomitant]
  7. FUROSEMIDE [Concomitant]
  8. INSULIN DETEMIR (LEVEMIR FLEXPEN) [Concomitant]
  9. ISORBIDE MONONITRATE CR (IMDUR) [Concomitant]
  10. LISINOPRIL-HYDROCHLOROTHIAZIDE (PRINZIDE, ZESTORETIC) [Concomitant]
  11. METOPROLOL (LORPRESSOR) [Concomitant]
  12. PRILOSEC [Concomitant]
  13. PLANT STANOL ESTER [Concomitant]
  14. RIVAROXABAN (XARELTO) [Concomitant]
  15. SENNA-DOCUSATE [Concomitant]

REACTIONS (1)
  - Deep vein thrombosis [None]
